FAERS Safety Report 4774841-5 (Version None)
Quarter: 2005Q3

REPORT INFORMATION
  Report Type: 
  Country: None (occurrence: None)
  Receive Date: 20050921
  Receipt Date: 20050913
  Transmission Date: 20060218
  Serious: Yes (Other)
  Sender: FDA-Public Use
  Company Number: 200513046FR

PATIENT
  Age: 55 Year
  Sex: Female

DRUGS (5)
  1. NASACORT [Suspect]
     Indication: RHINITIS ALLERGIC
     Route: 045
     Dates: start: 20030901
  2. AERIUS [Concomitant]
     Route: 048
  3. DEROXAT [Concomitant]
     Indication: DEPRESSION
     Route: 048
  4. LEVOTHYROXINE SODIUM [Concomitant]
     Indication: HYPOTHYROIDISM
     Route: 048
  5. STRUCTUM [Concomitant]
     Indication: OSTEOARTHRITIS
     Route: 048

REACTIONS (2)
  - CATARACT [None]
  - VISUAL ACUITY REDUCED [None]
